FAERS Safety Report 10459208 (Version 1)
Quarter: 2014Q3

REPORT INFORMATION
  Report Type: Spontaneous
  Country: US (occurrence: None)
  Receive Date: 20140915
  Receipt Date: 20140915
  Transmission Date: 20150326
  Serious: Yes (Hospitalization)
  Sender: FDA-Public Use
  Company Number: FK201403674

PATIENT
  Age: 42 Year
  Sex: Male

DRUGS (1)
  1. CISPLATIN (CISPLATIN) (CISPLATIN) [Suspect]
     Active Substance: CISPLATIN
     Indication: TESTIS CANCER
     Dosage: 400 MG/M2

REACTIONS (12)
  - Lobar pneumonia [None]
  - Thrombocytopenia [None]
  - Anaemia [None]
  - Medication error [None]
  - Immunosuppression [None]
  - Oropharyngeal candidiasis [None]
  - Respiratory failure [None]
  - Haemodialysis [None]
  - Overdose [None]
  - Renal failure acute [None]
  - Deafness [None]
  - Liver injury [None]
